FAERS Safety Report 12458311 (Version 7)
Quarter: 2016Q3

REPORT INFORMATION
  Report Type: Report from Study
  Country: IT (occurrence: IT)
  Receive Date: 20160613
  Receipt Date: 20160830
  Transmission Date: 20161109
  Serious: Yes (Life-Threatening, Hospitalization)
  Sender: FDA-Public Use
  Company Number: IT-ROCHE-1754636

PATIENT
  Age: 61 Year
  Sex: Male
  Weight: 70 kg

DRUGS (22)
  1. ATEZOLIZUMAB [Suspect]
     Active Substance: ATEZOLIZUMAB
     Indication: COLORECTAL CANCER METASTATIC
     Dosage: DATE OF MOST RECENT DOSE (800 MG)  PRIOR TO SAE: 20/APR/2016
     Route: 042
     Dates: start: 20160224
  2. METOCLOPRAMIDE. [Concomitant]
     Active Substance: METOCLOPRAMIDE
     Route: 065
     Dates: start: 20160506, end: 20160509
  3. PANTOPRAZOLO [Concomitant]
     Active Substance: PANTOPRAZOLE SODIUM
     Route: 065
     Dates: start: 20160506, end: 20160523
  4. VANCOMICINA [Concomitant]
     Active Substance: VANCOMYCIN
     Route: 065
     Dates: start: 20160508, end: 20160509
  5. DESAMETASONE [Concomitant]
     Active Substance: DEXAMETHASONE
     Indication: PREMEDICATION
     Route: 065
     Dates: start: 20151019, end: 20160420
  6. INSULINE [Concomitant]
     Active Substance: INSULIN NOS
     Route: 065
     Dates: start: 20160506, end: 20160523
  7. CEFAZOLINA [Concomitant]
     Active Substance: CEFAZOLIN SODIUM
     Indication: INFECTION
     Route: 065
     Dates: start: 20160506, end: 20160511
  8. BACTRIM [Concomitant]
     Active Substance: SULFAMETHOXAZOLE\TRIMETHOPRIM
     Route: 065
     Dates: start: 20160506, end: 20160511
  9. ROCEPHIN [Concomitant]
     Active Substance: CEFTRIAXONE SODIUM
     Indication: HYPOACUSIS
     Route: 065
     Dates: start: 20160412, end: 20160420
  10. SANDOZ-CALCIUM [Concomitant]
     Route: 065
     Dates: start: 20151030, end: 20151224
  11. BENTELAN [Concomitant]
     Active Substance: BETAMETHASONE SODIUM PHOSPHATE
     Indication: HYPOACUSIS
     Route: 065
     Dates: start: 20160412, end: 20160420
  12. FOLINIC ACID [Suspect]
     Active Substance: LEUCOVORIN
     Indication: COLORECTAL CANCER METASTATIC
     Dosage: DATE OF MOST RECENT DOSE (384 MG) PRIOR TO SAE: 20/APR/2016
     Route: 042
     Dates: start: 20160224
  13. ONDANSETRON [Concomitant]
     Active Substance: ONDANSETRON
     Indication: PREMEDICATION
     Route: 065
     Dates: start: 20151019, end: 20160420
  14. DOXAZOSIN [Concomitant]
     Active Substance: DOXAZOSIN\DOXAZOSIN MESYLATE
     Route: 065
     Dates: start: 20160513, end: 20160523
  15. PIPERACILLIN [Concomitant]
     Active Substance: PIPERACILLIN
     Route: 065
     Dates: start: 20160506, end: 20160511
  16. PROPOFOL. [Concomitant]
     Active Substance: PROPOFOL
     Route: 065
     Dates: start: 20160506, end: 20160523
  17. BEVACIZUMAB [Suspect]
     Active Substance: BEVACIZUMAB
     Indication: COLORECTAL CANCER METASTATIC
     Dosage: DATE OF MOST RECENT DOSE (330 MG) PRIOR TO SAE: 20/APR/2016
     Route: 042
     Dates: start: 20151019
  18. 5-FLUOROURACIL [Suspect]
     Active Substance: FLUOROURACIL
     Indication: COLORECTAL CANCER METASTATIC
     Dosage: DATE OF MOST RECENT DOSE (4080 MG) PRIOR TO SAE: 20/APR/2016
     Route: 042
     Dates: start: 20160224
  19. CLORFENAMINA [Concomitant]
     Indication: PREMEDICATION
     Route: 065
     Dates: start: 20151019, end: 20160420
  20. FUROSEMIDE. [Concomitant]
     Active Substance: FUROSEMIDE
     Route: 065
     Dates: start: 20160510, end: 20160512
  21. RAMIPRIL. [Concomitant]
     Active Substance: RAMIPRIL
     Route: 065
     Dates: start: 20160511, end: 20160523
  22. TRIATEC (ITALY) [Concomitant]
     Active Substance: RAMIPRIL
     Route: 065
     Dates: start: 20160111, end: 20160223

REACTIONS (1)
  - Respiratory failure [Recovered/Resolved with Sequelae]

NARRATIVE: CASE EVENT DATE: 20160505
